FAERS Safety Report 12766667 (Version 3)
Quarter: 2016Q4

REPORT INFORMATION
  Report Type: Spontaneous
  Country: LB (occurrence: LB)
  Receive Date: 20160921
  Receipt Date: 20161026
  Transmission Date: 20170207
  Serious: Yes (Other)
  Sender: FDA-Public Use
  Company Number: LB-PFIZER INC-2016439242

PATIENT
  Age: 30 Year
  Sex: Male

DRUGS (4)
  1. ESMERON [Concomitant]
     Active Substance: ROCURONIUM BROMIDE
  2. FENTANYL. [Concomitant]
     Active Substance: FENTANYL
  3. SEVOFLURANE. [Concomitant]
     Active Substance: SEVOFLURANE
  4. PRECEDEX [Suspect]
     Active Substance: DEXMEDETOMIDINE HYDROCHLORIDE
     Dosage: 10 ML/HR

REACTIONS (3)
  - Dysarthria [Unknown]
  - Cerebrovascular accident [Unknown]
  - Hemiplegia [Unknown]
